FAERS Safety Report 18315056 (Version 2)
Quarter: 2020Q4

REPORT INFORMATION
  Report Type: Spontaneous
  Country: AU (occurrence: AU)
  Receive Date: 20200925
  Receipt Date: 20201001
  Transmission Date: 20210113
  Serious: Yes (Other)
  Sender: FDA-Public Use
  Company Number: AU-BAXTER-2020BAX018920

PATIENT
  Age: 67 Year
  Sex: Male

DRUGS (8)
  1. STERILE WATER [Suspect]
     Active Substance: WATER
     Indication: MEDICATION DILUTION
     Dosage: VIA INFUSOR LV10.?VANCOMYCIN 4400 MG
     Route: 065
     Dates: start: 202009, end: 202009
  2. BAXTER 0.9% SODIUM CHLORIDE 9G_L INJECTION BP BAG AHB1324 [Suspect]
     Active Substance: SODIUM CHLORIDE
     Dosage: VIA INFUSOR LV10.
     Route: 065
     Dates: start: 202009, end: 202009
  3. VANCOMYCIN [Suspect]
     Active Substance: VANCOMYCIN
     Dosage: VIA INFUSOR LV10.
     Route: 065
     Dates: start: 202009, end: 202009
  4. BAXTER 0.9% SODIUM CHLORIDE 9G_L INJECTION BP BAG AHB1324 [Suspect]
     Active Substance: SODIUM CHLORIDE
     Indication: MEDICATION DILUTION
     Dosage: VIA INFUSOR LV10.
     Route: 065
     Dates: start: 202009, end: 202009
  5. STERILE WATER [Suspect]
     Active Substance: WATER
     Dosage: VIA INFUSOR LV10.?WITH VANCOMYCIN 2000 MG
     Route: 065
     Dates: start: 202009, end: 202009
  6. VANCOMYCIN [Suspect]
     Active Substance: VANCOMYCIN
     Indication: PRODUCT USED FOR UNKNOWN INDICATION
     Dosage: VIA INFUSOR LV10.
     Route: 065
     Dates: start: 202009, end: 202009
  7. PIPERACILLIN AND TAZOBACTAM [Suspect]
     Active Substance: PIPERACILLIN SODIUM\TAZOBACTAM SODIUM
     Indication: PRODUCT USED FOR UNKNOWN INDICATION
     Route: 065
  8. VANCOMYCIN [Suspect]
     Active Substance: VANCOMYCIN
     Dosage: VANCOMYCIN VIA BOLUS DOSES (UNSPECIFIED)
     Route: 040

REACTIONS (2)
  - Acute kidney injury [Unknown]
  - Drug level increased [Unknown]

NARRATIVE: CASE EVENT DATE: 20200909
